FAERS Safety Report 14519633 (Version 1)
Quarter: 2018Q1

REPORT INFORMATION
  Report Type: Spontaneous
  Country: US (occurrence: US)
  Receive Date: 20180210
  Receipt Date: 20180210
  Transmission Date: 20180509
  Serious: Yes (Life-Threatening, Hospitalization, Disabling, Other)
  Sender: FDA-Public Use
  Company Number: None

PATIENT
  Sex: Male
  Weight: 56.25 kg

DRUGS (1)
  1. MOMETASONE FUROATE OINTMENT USP, 0.1% [Suspect]
     Active Substance: MOMETASONE FUROATE
     Indication: ECZEMA
     Dates: start: 19990201, end: 20130810

REACTIONS (9)
  - Anxiety [None]
  - Insomnia [None]
  - Adrenal suppression [None]
  - Depression [None]
  - Pruritus generalised [None]
  - Osteonecrosis [None]
  - Skin exfoliation [None]
  - Steroid withdrawal syndrome [None]
  - Fatigue [None]

NARRATIVE: CASE EVENT DATE: 20140310
